FAERS Safety Report 4497337-7 (Version None)
Quarter: 2004Q4

REPORT INFORMATION
  Report Type: 
  Country: None (occurrence: None)
  Receive Date: 20041108
  Receipt Date: 20040528
  Transmission Date: 20050328
  Serious: Yes (Hospitalization)
  Sender: FDA-Public Use
  Company Number: USA040568461

PATIENT
  Age: 41 Year
  Sex: Female
  Weight: 46 kg

DRUGS (4)
  1. SYMBYAX [Suspect]
     Indication: BIPOLAR DISORDER
     Dates: start: 20040325, end: 20040520
  2. ZYPREXA [Suspect]
     Indication: BIPOLAR DISORDER
     Dosage: 2.5 MG/2 DAY
     Dates: start: 20040115, end: 20040325
  3. XANAX [Concomitant]
  4. DEPAKOTE [Concomitant]

REACTIONS (4)
  - CONSTIPATION [None]
  - GASTRITIS [None]
  - IRRITABLE BOWEL SYNDROME [None]
  - SINUSITIS [None]
